FAERS Safety Report 9068498 (Version 1)
Quarter: 2013Q1

REPORT INFORMATION
  Report Type: Spontaneous
  Country: US (occurrence: None)
  Receive Date: 20130212
  Receipt Date: 20130212
  Transmission Date: 20140127
  Serious: Yes (Hospitalization)
  Sender: FDA-Public Use
  Company Number: None

PATIENT
  Age: 89 Year
  Sex: Female
  Weight: 79 kg

DRUGS (6)
  1. SULFAMETHOXAZOLE/TRIMETHOPRIM 800/160 [Suspect]
     Indication: INFECTED SKIN ULCER
     Dosage: 800/160
     Route: 048
  2. LISINOPRIL [Concomitant]
  3. LEVOTHYROXINE [Concomitant]
  4. PENTOXIFYLLINE [Concomitant]
  5. KC1 10 [Concomitant]
  6. FUROSEMIDE [Concomitant]

REACTIONS (3)
  - Erythema multiforme [None]
  - Mental status changes [None]
  - Herpes virus infection [None]
